FAERS Safety Report 16992715 (Version 1)
Quarter: 2019Q4

REPORT INFORMATION
  Report Type: Spontaneous
  Country: FR (occurrence: FR)
  Receive Date: 20191105
  Receipt Date: 20191105
  Transmission Date: 20200122
  Serious: Yes (Death)
  Sender: FDA-Public Use
  Company Number: FR-ACCORD-159703

PATIENT
  Age: 55 Year
  Sex: Female
  Weight: 65 kg

DRUGS (6)
  1. EMEND [Concomitant]
     Active Substance: APREPITANT
     Indication: ANTIEMETIC SUPPORTIVE CARE
     Dosage: 125 MG ON DAY 1 AND THEN 80 MG DAY 2 - DAY 3
     Route: 048
     Dates: start: 20190910, end: 20190912
  2. ONDANSETRON [Concomitant]
     Active Substance: ONDANSETRON
     Indication: ANTIEMETIC SUPPORTIVE CARE
     Route: 042
     Dates: start: 20190910, end: 20190910
  3. FLUOROURACILE ACCORD [Suspect]
     Active Substance: FLUOROURACIL
     Indication: GASTRIC CANCER
     Dosage: 4000 MG / M2 OVER 120 H BUT EARLY CESSATION TO 34% OR 2314 MG
     Route: 042
     Dates: start: 20190910, end: 20190912
  4. HERCEPTIN [Suspect]
     Active Substance: TRASTUZUMAB
     Indication: GASTRIC CANCER
     Dosage: 8MG/KG SOIT 496MG
     Route: 042
     Dates: start: 20190910, end: 20190910
  5. METHYLPREDNISOLONE. [Suspect]
     Active Substance: METHYLPREDNISOLONE
     Indication: ANTIEMETIC SUPPORTIVE CARE
     Dosage: 80 MG TO DAY 1 THEN 40 MG FROM DAY 2 TO DAY 5
     Route: 042
     Dates: start: 20190910, end: 20190915
  6. CISPLATINE MYLAN [Suspect]
     Active Substance: CISPLATIN
     Indication: GASTRIC CANCER
     Dosage: 80 MG/M2 SOIT 134MG
     Route: 042
     Dates: start: 20190910, end: 20190910

REACTIONS (1)
  - Cardiac failure [Fatal]

NARRATIVE: CASE EVENT DATE: 20190911
